FAERS Safety Report 13397271 (Version 2)
Quarter: 2017Q2

REPORT INFORMATION
  Report Type: Report from Study
  Country: None (occurrence: BE)
  Receive Date: 20170403
  Receipt Date: 20170417
  Transmission Date: 20170830
  Serious: Yes (Hospitalization)
  Sender: FDA-Public Use
  Company Number: BE-ABBVIE-16P-013-1599631-00

PATIENT
  Sex: Male

DRUGS (12)
  1. DUODOPA [Suspect]
     Active Substance: CARBIDOPA\LEVODOPA
     Dosage: MD=2.5ML; CD=3.3ML/H FOR 16HRS; ED=2.5ML
     Route: 050
     Dates: start: 20160331, end: 201606
  2. DUODOPA [Suspect]
     Active Substance: CARBIDOPA\LEVODOPA
     Dosage: AM= 2.5 ML; CD= 3.3 ML/H DURING 16 HRS; ED= 2.5 ML
     Route: 050
     Dates: start: 201606, end: 20160621
  3. PROLOPA [Concomitant]
     Active Substance: BENSERAZIDE\LEVODOPA
     Indication: PARKINSON^S DISEASE
     Dosage: FORM STRENGTH: 200MG/50MG
     Route: 048
  4. DUODOPA [Suspect]
     Active Substance: CARBIDOPA\LEVODOPA
     Dosage: MD=2.5ML; CD=3.3ML/H FOR 16HRS; ED=2.5ML
     Route: 050
     Dates: start: 20160331, end: 20160331
  5. DUODOPA [Suspect]
     Active Substance: CARBIDOPA\LEVODOPA
     Dosage: AM= 3.0 ML; CD= 2.7 ML/H DURING 16 HRS; ND: 1.5ML/H FOR 8HRS, ED= 2.5 ML
     Route: 050
     Dates: start: 20170120
  6. DUODOPA [Suspect]
     Active Substance: CARBIDOPA\LEVODOPA
     Indication: PARKINSON^S DISEASE
     Dosage: MD=4ML; CD=2.2ML/H FOR 16HRS; ED=2ML; ND=1.7ML/H FOR 8HRS
     Route: 050
     Dates: start: 20130923, end: 20130927
  7. DUODOPA [Suspect]
     Active Substance: CARBIDOPA\LEVODOPA
     Dosage: DOSES CONTINUOUSLY MONITORED AND ADAPTED.
     Route: 050
     Dates: start: 20130927, end: 20160304
  8. DUODOPA [Suspect]
     Active Substance: CARBIDOPA\LEVODOPA
     Dosage: MD=2.5ML; CD=3.3ML/H FOR 16HRS; ED=2.5ML
     Route: 050
     Dates: start: 20160304, end: 20160331
  9. DUODOPA [Suspect]
     Active Substance: CARBIDOPA\LEVODOPA
     Dosage: AM= 2.5 ML; CD= 3.3 ML/H DURING 16 HRS; ED= 2.5 ML
     Route: 050
     Dates: start: 20160621, end: 20160913
  10. DUODOPA [Suspect]
     Active Substance: CARBIDOPA\LEVODOPA
     Dosage: AM= 2.5 ML; CD= 2.7 ML/H DURING 16 HRS; ED= 2.5 ML
     Route: 050
     Dates: start: 20161115, end: 20170120
  11. DUODOPA [Suspect]
     Active Substance: CARBIDOPA\LEVODOPA
     Dosage: AM= 2.5 ML; CD= 2.8 ML/H DURING 16 HRS; ED= 2.5 ML
     Route: 050
     Dates: start: 20160913, end: 20161115
  12. PROLOPA [Concomitant]
     Active Substance: BENSERAZIDE\LEVODOPA
     Dosage: FORM STRENGTH: 200MG/50MG

REACTIONS (14)
  - Freezing phenomenon [Not Recovered/Not Resolved]
  - Pain in extremity [Unknown]
  - Device use error [Unknown]
  - Device alarm issue [Recovered/Resolved]
  - Mobility decreased [Unknown]
  - Cognitive disorder [Unknown]
  - Incorrect route of drug administration [Recovered/Resolved]
  - Dyskinesia [Unknown]
  - Device occlusion [Recovered/Resolved]
  - General physical health deterioration [Unknown]
  - Device kink [Recovered/Resolved]
  - Confusional state [Not Recovered/Not Resolved]
  - Hallucination [Unknown]
  - Stoma site pain [Not Recovered/Not Resolved]
